FAERS Safety Report 18763088 (Version 1)
Quarter: 2021Q1

REPORT INFORMATION
  Report Type: Other
  Country: US (occurrence: US)
  Receive Date: 20210120
  Receipt Date: 20210120
  Transmission Date: 20210419
  Serious: Yes (Other)
  Sender: FDA-Public Use
  Company Number: US-ROCHE-2746949

PATIENT
  Sex: Female

DRUGS (2)
  1. OCREVUS [Suspect]
     Active Substance: OCRELIZUMAB
     Indication: MULTIPLE SCLEROSIS
     Dosage: YES?(SUBSEQUENT DATE OF TREATMENTS WERE 12/MAR/2020, 25/JUL/2019, 21/JAN/2019, 09/JUL/2018, 08/DEC/2
     Route: 065
     Dates: start: 20171208
  2. OCREVUS [Suspect]
     Active Substance: OCRELIZUMAB
     Indication: RELAPSING MULTIPLE SCLEROSIS
     Route: 065

REACTIONS (3)
  - Cystitis [Recovering/Resolving]
  - Off label use [Unknown]
  - Intentional product misuse [Unknown]
